FAERS Safety Report 15807690 (Version 1)
Quarter: 2019Q1

REPORT INFORMATION
  Report Type: Spontaneous
  Country: US (occurrence: US)
  Receive Date: 20190110
  Receipt Date: 20190110
  Transmission Date: 20190417
  Serious: Yes (Hospitalization, Other)
  Sender: FDA-Public Use
  Company Number: US-INCYTE CORPORATION-2019IN000184

PATIENT

DRUGS (9)
  1. NAVITOCLAX [Suspect]
     Active Substance: NAVITOCLAX
     Indication: MYELOFIBROSIS
     Dosage: 50 MG, QD
     Route: 048
     Dates: start: 20180912, end: 20180912
  2. NAVITOCLAX [Suspect]
     Active Substance: NAVITOCLAX
     Dosage: 100 MG, QD
     Route: 048
     Dates: start: 20180919, end: 20180925
  3. THIAMINE. [Concomitant]
     Active Substance: THIAMINE
     Indication: MENOPAUSE
     Dosage: 100 MG, QD
     Route: 048
     Dates: start: 20180801
  4. JAKAFI [Suspect]
     Active Substance: RUXOLITINIB
     Indication: MYELOFIBROSIS
     Dosage: 10 MG, BID (10MG 2 IN 1 D)
     Route: 048
     Dates: start: 20180821, end: 20181124
  5. NAVITOCLAX [Suspect]
     Active Substance: NAVITOCLAX
     Dosage: 300 MG, QD
     Route: 048
     Dates: start: 20181010, end: 20181106
  6. ESTRADIOL. [Concomitant]
     Active Substance: ESTRADIOL
     Indication: MENOPAUSE
     Dosage: 0.1 MG, 2X/WEEK ON T.SAT
     Route: 062
     Dates: start: 20180502
  7. NAVITOCLAX [Suspect]
     Active Substance: NAVITOCLAX
     Dosage: 200 MG, QD
     Route: 048
     Dates: start: 20180926, end: 20181009
  8. NAVITOCLAX [Suspect]
     Active Substance: NAVITOCLAX
     Dosage: 200 MG, QD
     Route: 048
     Dates: start: 20181109, end: 20191124
  9. PROGESTERONE HEPTANOATE [Concomitant]
     Indication: MENOPAUSE
     Dosage: UNK
     Route: 048

REACTIONS (2)
  - Anaemia [Recovered/Resolved]
  - Thrombocytopenia [Recovered/Resolved]

NARRATIVE: CASE EVENT DATE: 20181124
